FAERS Safety Report 19241538 (Version 1)
Quarter: 2021Q2

REPORT INFORMATION
  Report Type: Spontaneous
  Country: US (occurrence: US)
  Receive Date: 20210511
  Receipt Date: 20210511
  Transmission Date: 20210717
  Serious: Yes (Other)
  Sender: FDA-Public Use
  Company Number: US-ABBVIE-21K-163-3897307-00

PATIENT
  Sex: Female

DRUGS (3)
  1. HUMIRA [Suspect]
     Active Substance: ADALIMUMAB
     Route: 058
     Dates: start: 201908
  2. HUMIRA [Suspect]
     Active Substance: ADALIMUMAB
     Indication: CROHN^S DISEASE
     Route: 058
     Dates: start: 201508, end: 201908
  3. CANNABIDIOL [Concomitant]
     Active Substance: CANNABIDIOL
     Indication: PAIN

REACTIONS (11)
  - Bladder prolapse [Not Recovered/Not Resolved]
  - Anal fistula [Recovered/Resolved]
  - Dyspepsia [Recovered/Resolved]
  - Anorectal discomfort [Not Recovered/Not Resolved]
  - Crohn^s disease [Recovered/Resolved]
  - Impetigo [Recovering/Resolving]
  - Urinary tract infection [Not Recovered/Not Resolved]
  - Rectal abscess [Recovered/Resolved]
  - Frequent bowel movements [Recovered/Resolved]
  - Skin infection [Not Recovered/Not Resolved]
  - Gastrointestinal inflammation [Recovering/Resolving]

NARRATIVE: CASE EVENT DATE: 2015
